FAERS Safety Report 12512348 (Version 2)
Quarter: 2016Q4

REPORT INFORMATION
  Report Type: Spontaneous
  Country: US (occurrence: US)
  Receive Date: 20160630
  Receipt Date: 20161110
  Transmission Date: 20170207
  Serious: Yes (Death, Hospitalization)
  Sender: FDA-Public Use
  Company Number: US-JNJFOC-20160509692

PATIENT
  Age: 74 Year
  Sex: Male

DRUGS (1)
  1. XARELTO [Suspect]
     Active Substance: RIVAROXABAN
     Indication: ARTERIAL THERAPEUTIC PROCEDURE
     Route: 048
     Dates: start: 201503, end: 20150416

REACTIONS (2)
  - Gastrointestinal haemorrhage [Unknown]
  - Respiratory failure [Fatal]

NARRATIVE: CASE EVENT DATE: 20150416
